FAERS Safety Report 8561274-9 (Version None)
Quarter: 2012Q3

REPORT INFORMATION
  Report Type: 
  Country: None (occurrence: None)
  Receive Date: 20120802
  Receipt Date: 20120720
  Transmission Date: 20120928
  Serious: No
  Sender: FDA-Public Use
  Company Number: US-ASTRAZENECA-2011SE57908

PATIENT
  Age: 40 Year
  Sex: Female

DRUGS (8)
  1. PRILOSEC OTC [Suspect]
     Route: 048
  2. PROTONIX [Concomitant]
  3. NEXIUM [Suspect]
     Indication: OESOPHAGITIS
     Route: 048
  4. PRILOSEC [Suspect]
     Indication: OESOPHAGITIS
     Route: 048
  5. ACIPHEX [Concomitant]
  6. ZANTAC [Concomitant]
  7. MULTIPLE MEDICATIONS [Concomitant]
  8. PRILOSEC [Suspect]
     Indication: HIATUS HERNIA
     Route: 048

REACTIONS (7)
  - CONDITION AGGRAVATED [None]
  - ADVERSE EVENT [None]
  - GASTROOESOPHAGEAL REFLUX DISEASE [None]
  - HIATUS HERNIA [None]
  - DRUG DOSE OMISSION [None]
  - DYSPEPSIA [None]
  - DRUG INEFFECTIVE [None]
